FAERS Safety Report 15139183 (Version 2)
Quarter: 2018Q3

REPORT INFORMATION
  Report Type: Spontaneous
  Country: US (occurrence: US)
  Receive Date: 20180713
  Receipt Date: 20180926
  Transmission Date: 20181010
  Serious: Yes (Other)
  Sender: FDA-Public Use
  Company Number: US-PFIZER INC-2018275610

PATIENT
  Age: 73 Year
  Sex: Female

DRUGS (10)
  1. ATIVAN [Concomitant]
     Active Substance: LORAZEPAM
     Dosage: 0.5 MG, 1X/DAY
     Dates: start: 201709
  2. ATIVAN [Concomitant]
     Active Substance: LORAZEPAM
     Dosage: 0.25 MG, 1X/DAY
     Dates: end: 201806
  3. TYLENOL [Concomitant]
     Active Substance: ACETAMINOPHEN
  4. MILK OF MAGNESIA [Concomitant]
     Active Substance: MAGNESIUM HYDROXIDE
     Indication: ABDOMINAL DISCOMFORT
     Dosage: UNK, DAILY
  5. AMLODIPINE BESILATE [Suspect]
     Active Substance: AMLODIPINE BESYLATE
     Dosage: UNK(SHE HAD REDUCED HER DOSE BY HALF)
  6. ATIVAN [Concomitant]
     Active Substance: LORAZEPAM
     Dosage: 0.25 MG, UNK (EVERY 2 DAYS THEN EVERY 3 DAYS THEN TO EVERY 4 DAYS)
  7. ALEVE [Concomitant]
     Active Substance: NAPROXEN SODIUM
     Indication: PAIN
     Dosage: 220 MG, AS NEEDED (ONCE DAILY)
     Dates: start: 2018
  8. CBD OIL [Concomitant]
     Active Substance: CANNABIDIOL
     Indication: PAIN
     Dosage: UNK
     Route: 061
     Dates: start: 2018
  9. AMLODIPINE BESILATE [Suspect]
     Active Substance: AMLODIPINE BESYLATE
     Indication: HYPERTENSION
     Dosage: 10 MG, 1X/DAY(ONCE DAILY IN THE MORNING)
     Route: 048
     Dates: start: 20180327, end: 20180427
  10. CBD OIL [Concomitant]
     Active Substance: CANNABIDIOL
     Indication: STRESS

REACTIONS (3)
  - Peripheral swelling [Recovered/Resolved]
  - Pain in extremity [Not Recovered/Not Resolved]
  - Neuropathy peripheral [Not Recovered/Not Resolved]

NARRATIVE: CASE EVENT DATE: 201804
